FAERS Safety Report 10171427 (Version 1)
Quarter: 2014Q2

REPORT INFORMATION
  Report Type: Spontaneous
  Country: US (occurrence: None)
  Receive Date: 20140428
  Receipt Date: 20140428
  Transmission Date: 20141212
  Serious: Yes (Other)
  Sender: FDA-Public Use
  Company Number: PHEH2013US025198

PATIENT
  Age: 31 Year
  Sex: Male

DRUGS (2)
  1. GILENYA (FINGOLIMOD) CAPSULE, 0.5MG [Suspect]
     Indication: MULTIPLE SCLEROSIS
     Route: 048
     Dates: start: 20130829, end: 20131203
  2. BACLOFEN (BACLOFEN) [Concomitant]

REACTIONS (4)
  - Hepatic enzyme increased [None]
  - Weight increased [None]
  - Nausea [None]
  - Fatigue [None]
